FAERS Safety Report 5311219-X (Version None)
Quarter: 2007Q2

REPORT INFORMATION
  Report Type: 
  Country: None (occurrence: None)
  Receive Date: 20070430
  Receipt Date: 20070419
  Transmission Date: 20071010
  Serious: Yes (Hospitalization)
  Sender: FDA-Public Use
  Company Number: PHHO2001IT10390

PATIENT
  Age: 60 Year
  Weight: 70 kg

DRUGS (5)
  1. TAMOXIFEN CITRATE [Suspect]
     Indication: BREAST CANCER
     Route: 048
     Dates: start: 20010608, end: 20011128
  2. LANOXIN [Concomitant]
     Indication: CARDIOMYOPATHY
  3. CORDARONE [Concomitant]
     Indication: CARDIOMYOPATHY
  4. LASIX [Concomitant]
     Indication: CARDIOMYOPATHY
  5. LOSARTAN POSTASSIUM [Concomitant]

REACTIONS (2)
  - CONGESTIVE CARDIOMYOPATHY [None]
  - DYSPNOEA [None]
